FAERS Safety Report 9669345 (Version 3)
Quarter: 2014Q1

REPORT INFORMATION
  Report Type: Spontaneous
  Country: US (occurrence: US)
  Receive Date: 20131105
  Receipt Date: 20140121
  Transmission Date: 20141002
  Serious: Yes (Hospitalization)
  Sender: FDA-Public Use
  Company Number: US-ASTRAZENECA-2013SE79522

PATIENT
  Age: 78 Year
  Sex: Female
  Weight: 78 kg

DRUGS (4)
  1. SYMBICORT [Suspect]
     Indication: CHRONIC OBSTRUCTIVE PULMONARY DISEASE
     Dosage: 160/4.5 MCG, 2 PUFFS TWICE A DAY
     Route: 055
     Dates: start: 2013
  2. SYMBICORT [Suspect]
     Indication: CHRONIC OBSTRUCTIVE PULMONARY DISEASE
     Dosage: 160/4.5 MCG, 2 PUFFS DAILY
     Route: 055
  3. PULMICORT FLEXHALER [Suspect]
     Route: 055
     Dates: end: 2013
  4. QUITE A FEW OTHER MEDICATIONS [Concomitant]

REACTIONS (3)
  - Cardiac failure congestive [Unknown]
  - Incorrect dose administered [Unknown]
  - Intentional drug misuse [Not Recovered/Not Resolved]
